FAERS Safety Report 13008606 (Version 1)
Quarter: 2016Q4

REPORT INFORMATION
  Report Type: Spontaneous
  Country: FR (occurrence: FR)
  Receive Date: 20161208
  Receipt Date: 20161208
  Transmission Date: 20170207
  Serious: Yes (Other)
  Sender: FDA-Public Use
  Company Number: FR-FRESENIUS KABI-FK201609570

PATIENT
  Sex: Female

DRUGS (2)
  1. GROWTH HORMONE [Suspect]
     Active Substance: SOMATROPIN
     Indication: SUPPLEMENTATION THERAPY
  2. ETOPOSIDE (MANUFACTURER UNKNOWN) [Suspect]
     Active Substance: ETOPOSIDE
     Indication: NEUROBLASTOMA
     Route: 065

REACTIONS (1)
  - Ewing^s sarcoma [Unknown]
